FAERS Safety Report 8196600-6 (Version None)
Quarter: 2012Q1

REPORT INFORMATION
  Report Type: 
  Country: None (occurrence: None)
  Receive Date: 20120309
  Receipt Date: 20120301
  Transmission Date: 20120608
  Serious: Yes (Hospitalization, Other)
  Sender: FDA-Public Use
  Company Number: US-BAYER-2011-071672

PATIENT
  Age: 16 Year
  Sex: Female
  Weight: 72.562 kg

DRUGS (10)
  1. AMOXICILLIN [Concomitant]
     Dosage: UNK
     Dates: start: 20030101, end: 20110101
  2. ZOFRAN [Concomitant]
     Indication: VOMITING
  3. AZITHROMYCIN [Concomitant]
     Dosage: UNK
     Dates: start: 20030101, end: 20110101
  4. ZOFRAN [Concomitant]
     Indication: NAUSEA
     Dosage: 8 MG, PRN
     Dates: start: 20090924
  5. ZYRTEC [Concomitant]
     Indication: SINUS DISORDER
     Dosage: UNK
     Dates: start: 20090401, end: 20091001
  6. PROTONIX [Concomitant]
     Dosage: 40 MG, QD
     Dates: start: 20090924
  7. VICODIN [Concomitant]
     Indication: PAIN
     Dosage: 5 MG, PRN
     Dates: start: 20090924
  8. YAZ [Suspect]
     Indication: CONTRACEPTION
     Dosage: UNK
     Dates: start: 20090401, end: 20091101
  9. YAZ [Suspect]
     Indication: PREMENSTRUAL SYNDROME
  10. MOTRIN [Concomitant]
     Dosage: UNK
     Dates: start: 20030101, end: 20120101

REACTIONS (8)
  - ANXIETY [None]
  - CHOLECYSTECTOMY [None]
  - INJURY [None]
  - CHOLECYSTITIS CHRONIC [None]
  - EMOTIONAL DISTRESS [None]
  - GENERAL PHYSICAL HEALTH DETERIORATION [None]
  - BILIARY DYSKINESIA [None]
  - PAIN [None]
